FAERS Safety Report 21295517 (Version 1)
Quarter: 2022Q3

REPORT INFORMATION
  Report Type: Report from Study
  Country: CL (occurrence: CL)
  Receive Date: 20220905
  Receipt Date: 20220905
  Transmission Date: 20221027
  Serious: Yes (Death, Hospitalization, Other)
  Sender: FDA-Public Use
  Company Number: CL-BRISTOL-MYERS SQUIBB COMPANY-2022-027967

PATIENT
  Age: 68 Year
  Sex: Female
  Weight: 62 kg

DRUGS (10)
  1. IPILIMUMAB [Suspect]
     Active Substance: IPILIMUMAB
     Indication: Colorectal cancer metastatic
     Route: 065
     Dates: start: 20220317, end: 20220317
  2. IPILIMUMAB [Suspect]
     Active Substance: IPILIMUMAB
     Indication: Colorectal cancer metastatic
  3. TRAMETINIB [Suspect]
     Active Substance: TRAMETINIB
     Indication: Colorectal cancer metastatic
     Dosage: MG
     Route: 048
     Dates: start: 20220317
  4. TRAMETINIB [Suspect]
     Active Substance: TRAMETINIB
     Indication: Colorectal cancer metastatic
  5. UREA 10% [Concomitant]
     Indication: Product used for unknown indication
     Dosage: 1
     Route: 061
     Dates: start: 20220331
  6. UREA 10% [Concomitant]
     Indication: Adverse event
  7. LOPERAMIDE [Concomitant]
     Active Substance: LOPERAMIDE
     Indication: Adverse event
     Route: 048
     Dates: start: 20220412
  8. HYDROCORTISONE [Concomitant]
     Active Substance: HYDROCORTISONE
     Indication: Adverse event
     Route: 042
     Dates: start: 20220412, end: 20220412
  9. ACETAMINOPHEN [Concomitant]
     Active Substance: ACETAMINOPHEN
     Indication: Adverse event
     Route: 042
     Dates: start: 20220412, end: 20220412
  10. CODEINE [Concomitant]
     Active Substance: CODEINE
     Indication: Adverse event
     Dosage: 10 UNITS NOS
     Route: 048
     Dates: start: 20220412, end: 20220412

REACTIONS (1)
  - Pneumonitis [Fatal]

NARRATIVE: CASE EVENT DATE: 20220409
